FAERS Safety Report 7158020-2 (Version None)
Quarter: 2010Q4

REPORT INFORMATION
  Report Type: 
  Country: None (occurrence: None)
  Receive Date: 20101214
  Receipt Date: 20100414
  Transmission Date: 20110411
  Serious: No
  Sender: FDA-Public Use
  Company Number: US-ASTRAZENECA-2010SE16591

PATIENT
  Age: 67 Year
  Sex: Female
  Weight: 72.6 kg

DRUGS (7)
  1. CRESTOR [Suspect]
     Route: 048
     Dates: start: 20091001
  2. ZANTAC [Concomitant]
     Indication: GASTROOESOPHAGEAL REFLUX DISEASE
  3. PLAVIX [Concomitant]
  4. NIASPAN [Concomitant]
     Indication: BLOOD CHOLESTEROL
  5. METFORMIN [Concomitant]
     Indication: DIABETES MELLITUS
  6. HYDROCHLOROTHIAZIDE [Concomitant]
     Indication: HYPERTENSION
  7. AMLODIPINE [Concomitant]
     Indication: HYPERTENSION

REACTIONS (5)
  - CHEST DISCOMFORT [None]
  - HEADACHE [None]
  - MUSCLE TIGHTNESS [None]
  - MUSCULAR WEAKNESS [None]
  - VISION BLURRED [None]
